FAERS Safety Report 5596384-1 (Version None)
Quarter: 2007Q4

REPORT INFORMATION
  Report Type: 
  Country: None (occurrence: None)
  Receive Date: 20071218
  Receipt Date: 20070213
  Transmission Date: 20080405
  Serious: Yes (Hospitalization, Other)
  Sender: FDA-Public Use
  Company Number: 2006007511

PATIENT
  Age: 56 Year
  Sex: Male
  Weight: 91.6 kg

DRUGS (3)
  1. BEXTRA [Suspect]
     Indication: INFLAMMATION
     Dosage: 20 MG (20 MG,1 IN 1 D)
     Dates: start: 20030201, end: 20050401
  2. BEXTRA [Suspect]
     Indication: MUSCULOSKELETAL PAIN
     Dosage: 20 MG (20 MG,1 IN 1 D)
     Dates: start: 20030201, end: 20050401
  3. BEXTRA [Suspect]
     Indication: PAIN
     Dosage: 20 MG (20 MG,1 IN 1 D)
     Dates: start: 20030201, end: 20050401

REACTIONS (2)
  - ANXIETY [None]
  - MYOCARDIAL INFARCTION [None]
